FAERS Safety Report 4608606-1 (Version None)
Quarter: 2005Q1

REPORT INFORMATION
  Report Type: 
  Country: None (occurrence: None)
  Receive Date: 20050315
  Receipt Date: 20050303
  Transmission Date: 20050727
  Serious: Yes (Other)
  Sender: FDA-Public Use
  Company Number: DE-JNJFOC-20050301138

PATIENT
  Sex: Female
  Weight: 79 kg

DRUGS (3)
  1. TOPAMAX [Suspect]
     Indication: DRUG USE FOR UNKNOWN INDICATION
     Route: 049
     Dates: start: 20000101
  2. ORGAMETRIL [Concomitant]
     Route: 049
  3. ERGENYL [Concomitant]
     Route: 065

REACTIONS (1)
  - THROMBOSIS [None]
